FAERS Safety Report 17588250 (Version 2)
Quarter: 2020Q2

REPORT INFORMATION
  Report Type: Spontaneous
  Country: US (occurrence: US)
  Receive Date: 20200327
  Receipt Date: 20200506
  Transmission Date: 20200713
  Serious: Yes (Other)
  Sender: FDA-Public Use
  Company Number: US-ALVOGEN-2020-ALVOGEN-107902

PATIENT
  Age: 53 Year
  Sex: Female

DRUGS (2)
  1. GABAPENTINE [Suspect]
     Active Substance: GABAPENTIN
     Indication: PRODUCT USED FOR UNKNOWN INDICATION
     Route: 048
  2. GABAPENTINE [Suspect]
     Active Substance: GABAPENTIN
     Indication: LUMBAR RADICULOPATHY
     Dosage: GRALISE STRENGTH-600 MG/DOSE-1800 MG DAILY
     Route: 048

REACTIONS (4)
  - Product dose omission [Unknown]
  - Hypotension [Unknown]
  - Unresponsive to stimuli [Unknown]
  - Blood pressure fluctuation [Unknown]
